FAERS Safety Report 6964887-0 (Version None)
Quarter: 2010Q3

REPORT INFORMATION
  Report Type: 
  Country: None (occurrence: None)
  Receive Date: 20100903
  Receipt Date: 20100825
  Transmission Date: 20110219
  Serious: Yes (Hospitalization)
  Sender: FDA-Public Use
  Company Number: US-ELI_LILLY_AND_COMPANY-US201008008913

PATIENT
  Sex: Male

DRUGS (1)
  1. HUMULIN 70/30 [Suspect]
     Indication: TYPE 2 DIABETES MELLITUS
     Dosage: 35 U, 2/D

REACTIONS (2)
  - ANXIETY [None]
  - CEREBROVASCULAR ACCIDENT [None]
